FAERS Safety Report 14696382 (Version 1)
Quarter: 2018Q1

REPORT INFORMATION
  Report Type: Spontaneous
  Country: US (occurrence: US)
  Receive Date: 20180330
  Receipt Date: 20180330
  Transmission Date: 20180509
  Serious: No
  Sender: FDA-Public Use
  Company Number: US-SA-2017SA043100

PATIENT
  Age: 63 Year
  Sex: Female
  Weight: 86 kg

DRUGS (2)
  1. ALLEGRA [Suspect]
     Active Substance: FEXOFENADINE HYDROCHLORIDE
     Indication: RESPIRATORY TRACT INFECTION VIRAL
     Route: 065
     Dates: start: 20170215, end: 20170215
  2. CLARITIN [Concomitant]
     Active Substance: LORATADINE
     Route: 065

REACTIONS (3)
  - Ageusia [Recovered/Resolved]
  - Anosmia [Recovered/Resolved]
  - Dysgeusia [Recovered/Resolved]

NARRATIVE: CASE EVENT DATE: 20170215
